FAERS Safety Report 6289609-0 (Version None)
Quarter: 2009Q3

REPORT INFORMATION
  Report Type: 
  Country: None (occurrence: None)
  Receive Date: 20090730
  Receipt Date: 20090724
  Transmission Date: 20100115
  Serious: Yes (Other)
  Sender: FDA-Public Use
  Company Number: BE-BAYER-200926378GPV

PATIENT
  Age: 33 Year
  Sex: Female

DRUGS (7)
  1. MOXIFLOXACIN HCL [Suspect]
     Indication: SINUSITIS BACTERIAL
     Dosage: TOTAL DAILY DOSE: 400 MG  UNIT DOSE: 400 MG
     Route: 048
     Dates: start: 20090218, end: 20090218
  2. MOXIFLOXACIN HCL [Suspect]
     Dosage: TOTAL DAILY DOSE: 400 MG  UNIT DOSE: 400 MG
     Route: 048
     Dates: start: 20090304, end: 20090304
  3. PLACEBO TO PRUCALOPRIDE [Suspect]
     Indication: CONSTIPATION
     Route: 048
     Dates: start: 20090218, end: 20090222
  4. PLACEBO TO PRUCALOPRIDE [Suspect]
     Route: 048
     Dates: start: 20090223, end: 20090223
  5. PLACEBO TO PRUCALOPRIDE [Suspect]
     Route: 048
     Dates: start: 20090224, end: 20090224
  6. PLACEBO TO PRUCALOPRIDE [Suspect]
     Route: 048
     Dates: start: 20090225, end: 20090225
  7. PLACEBO TO PRUCALOPRIDE [Suspect]
     Route: 048
     Dates: start: 20090226, end: 20090302

REACTIONS (2)
  - ABORTION SPONTANEOUS [None]
  - DRUG EXPOSURE DURING PREGNANCY [None]
